FAERS Safety Report 16741467 (Version 1)
Quarter: 2019Q3

REPORT INFORMATION
  Report Type: Spontaneous
  Country: JP (occurrence: JP)
  Receive Date: 20190826
  Receipt Date: 20190826
  Transmission Date: 20191005
  Serious: Yes (Other)
  Sender: FDA-Public Use
  Company Number: JP-PFIZER INC-2019301867

PATIENT
  Age: 75 Year
  Sex: Female
  Weight: 50.2 kg

DRUGS (4)
  1. OLANZAPINE. [Suspect]
     Active Substance: OLANZAPINE
     Indication: DEPRESSION
     Dosage: 5 MG, 1X/DAY
     Route: 048
     Dates: start: 20190625, end: 20190708
  2. EFFEXOR [Suspect]
     Active Substance: VENLAFAXINE HYDROCHLORIDE
     Indication: DEPRESSION
     Dosage: 37.5 MG, 1X/DAY
     Route: 048
     Dates: start: 20190702, end: 20190708
  3. QUETIAPINE. [Suspect]
     Active Substance: QUETIAPINE
  4. LAMICTAL [Concomitant]
     Active Substance: LAMOTRIGINE
     Indication: THERAPEUTIC PROCEDURE
     Dosage: 100 MG, 1X/DAY
     Route: 048
     Dates: start: 20190619

REACTIONS (2)
  - Blood creatine phosphokinase increased [Recovered/Resolved]
  - Liver disorder [Recovered/Resolved]

NARRATIVE: CASE EVENT DATE: 20190708
